FAERS Safety Report 15999137 (Version 1)
Quarter: 2019Q1

REPORT INFORMATION
  Report Type: Other
  Country: GB (occurrence: GB)
  Receive Date: 20190225
  Receipt Date: 20190225
  Transmission Date: 20190418
  Serious: Yes (Hospitalization, Other)
  Sender: FDA-Public Use
  Company Number: GB-APOTEX-2019AP008103

PATIENT
  Age: 44 Year
  Sex: Female

DRUGS (13)
  1. LORAZEPAM. [Suspect]
     Active Substance: LORAZEPAM
     Indication: PRODUCT USED FOR UNKNOWN INDICATION
     Dosage: 1 DF, PRN  1-2MG MAXIMUM 4MG DAILY
     Route: 048
     Dates: start: 20150330, end: 20150412
  2. ABILIFY [Suspect]
     Active Substance: ARIPIPRAZOLE
     Indication: BIPOLAR I DISORDER
     Dosage: 15 MG, QD
     Route: 048
     Dates: start: 20150130, end: 20150413
  3. ABILIFY [Suspect]
     Active Substance: ARIPIPRAZOLE
     Indication: BIPOLAR DISORDER
     Dosage: 15 MG, QD
     Route: 048
     Dates: start: 20150407
  4. CLOPIXOL-ACUPHASE [Suspect]
     Active Substance: ZUCLOPENTHIXOL
     Dosage: 150 MG, QD
     Route: 030
     Dates: start: 20150412, end: 20150412
  5. CLONAZEPAM. [Suspect]
     Active Substance: CLONAZEPAM
     Indication: PRODUCT USED FOR UNKNOWN INDICATION
     Dosage: 1 MG, QD
     Route: 048
     Dates: start: 20150329, end: 20150413
  6. OLANZAPINE. [Suspect]
     Active Substance: OLANZAPINE
     Indication: PRODUCT USED FOR UNKNOWN INDICATION
     Dosage: 1 DF, PRN 1 DF = 5-10MG MAXIMUM UP TO 20 MG DAILY
     Route: 048
     Dates: start: 20150330, end: 20150412
  7. LORAZEPAM. [Suspect]
     Active Substance: LORAZEPAM
     Indication: PRODUCT USED FOR UNKNOWN INDICATION
     Dosage: 1 DF, 1 DF = 1-2MG MAXIMUM 4MG DAILY
     Route: 030
     Dates: start: 20150330, end: 20150412
  8. ABILIFY [Suspect]
     Active Substance: ARIPIPRAZOLE
     Indication: PRODUCT USED FOR UNKNOWN INDICATION
     Dosage: 20 MG, QD
     Route: 048
     Dates: start: 20150409, end: 20150413
  9. CLOPIXOL-ACUPHASE [Suspect]
     Active Substance: ZUCLOPENTHIXOL
     Dosage: 100 MG, QD
     Route: 030
     Dates: start: 20150413, end: 20150413
  10. CLOPIXOL-ACUPHASE [Suspect]
     Active Substance: ZUCLOPENTHIXOL
     Indication: PRODUCT USED FOR UNKNOWN INDICATION
     Dosage: 100 MG, Q.O.D.
     Route: 030
     Dates: start: 20150401, end: 20150402
  11. LORAZEPAM. [Suspect]
     Active Substance: LORAZEPAM
     Dosage: 4 MG, UNK
     Route: 030
     Dates: start: 20150401, end: 20150402
  12. ABILIFY [Suspect]
     Active Substance: ARIPIPRAZOLE
     Indication: MANIA
     Dosage: 10 MG, QD
     Route: 048
     Dates: start: 20150330
  13. CLOPIXOL-ACUPHASE [Suspect]
     Active Substance: ZUCLOPENTHIXOL
     Indication: MANIA
     Dosage: 50 MG, QD
     Route: 030
     Dates: start: 20150331, end: 20150331

REACTIONS (3)
  - Prescribed overdose [Recovered/Resolved]
  - Medication error [Recovered/Resolved]
  - Neutropenia [Recovered/Resolved]

NARRATIVE: CASE EVENT DATE: 20150414
